FAERS Safety Report 19138330 (Version 1)
Quarter: 2021Q2

REPORT INFORMATION
  Report Type: Spontaneous
  Country: CN (occurrence: CN)
  Receive Date: 20210414
  Receipt Date: 20210414
  Transmission Date: 20210717
  Serious: Yes (Other)
  Sender: FDA-Public Use
  Company Number: CN-SA-2021SA115988

PATIENT
  Age: 65 Year
  Sex: Male

DRUGS (5)
  1. RIVAROXABAN [Concomitant]
     Active Substance: RIVAROXABAN
     Dosage: 15 MG, BID
     Route: 048
  2. LEVOFLOXACIN LACTATE AND SODIUM CHLORIDE [Concomitant]
     Active Substance: LEVOFLOXACIN LACTATE
     Indication: PNEUMONIA
     Dosage: 0.4 G, QD
     Route: 041
     Dates: start: 20210321, end: 20210324
  3. BICYCLOL [Concomitant]
     Active Substance: BICYCLOL
     Dosage: 25 MG, TID
     Route: 048
  4. ENOXAPARIN SODIUM. [Suspect]
     Active Substance: ENOXAPARIN SODIUM
     Indication: ANTICOAGULANT THERAPY
     Dosage: 6000 IU, Q12H
     Route: 058
     Dates: start: 20210319, end: 20210324
  5. BROMHEXINE HYDROCHLORIDE AND GLUCOSE [Concomitant]
     Indication: LUNG DISORDER
     Dosage: 4 MG, BID
     Route: 041
     Dates: start: 20210312, end: 20210324

REACTIONS (1)
  - Liver injury [Recovering/Resolving]

NARRATIVE: CASE EVENT DATE: 20210324
